FAERS Safety Report 4789394-5 (Version None)
Quarter: 2005Q3

REPORT INFORMATION
  Report Type: 
  Country: None (occurrence: None)
  Receive Date: 20050929
  Receipt Date: 20050727
  Transmission Date: 20060218
  Serious: No
  Sender: FDA-Public Use
  Company Number: 05P-163-0306819-00

PATIENT
  Sex: Male

DRUGS (1)
  1. HUMIRA [Suspect]
     Dosage: 40 MG, SUBCUTANEOUS
     Route: 058

REACTIONS (5)
  - ARTHROPOD STING [None]
  - GINGIVAL INFECTION [None]
  - IMPAIRED HEALING [None]
  - OEDEMA PERIPHERAL [None]
  - SKIN LACERATION [None]
